FAERS Safety Report 4860574-3 (Version None)
Quarter: 2005Q4

REPORT INFORMATION
  Report Type: 
  Country: None (occurrence: None)
  Receive Date: 20051219
  Receipt Date: 20051005
  Transmission Date: 20060501
  Serious: Yes (Hospitalization, Other)
  Sender: FDA-Public Use
  Company Number: US-MERCK-0510USA03425

PATIENT
  Age: 50 Year
  Sex: Female
  Weight: 59 kg

DRUGS (2)
  1. VIOXX [Suspect]
     Indication: ARTHRALGIA
     Route: 048
     Dates: start: 20030101, end: 20040101
  2. VIOXX [Suspect]
     Indication: SWELLING
     Route: 048
     Dates: start: 20030101, end: 20040101

REACTIONS (14)
  - CARDIOMEGALY [None]
  - CHEST DISCOMFORT [None]
  - CHEST PAIN [None]
  - CHONDROMALACIA [None]
  - DYSPNOEA [None]
  - FALL [None]
  - FATIGUE [None]
  - HYPERTENSION [None]
  - JOINT ADHESION [None]
  - MITRAL VALVE DISEASE [None]
  - MITRAL VALVE INCOMPETENCE [None]
  - SYNOVITIS [None]
  - TENDONITIS [None]
  - WEIGHT INCREASED [None]
